FAERS Safety Report 11460144 (Version 1)
Quarter: 2015Q3

REPORT INFORMATION
  Report Type: Spontaneous
  Country: US (occurrence: US)
  Receive Date: 20150904
  Receipt Date: 20150904
  Transmission Date: 20151125
  Serious: No
  Sender: FDA-Public Use
  Company Number: US-GLAXOSMITHKLINE-US2015122667

PATIENT
  Age: 42 Year
  Sex: Female

DRUGS (2)
  1. NICODERM CQ [Suspect]
     Active Substance: NICOTINE
     Indication: SMOKING CESSATION THERAPY
     Dosage: 21 MG, UNK
     Dates: start: 20150822
  2. NICORETTE [Suspect]
     Active Substance: NICOTINE
     Indication: SMOKING CESSATION THERAPY
     Dosage: UNK

REACTIONS (8)
  - Dilated pores [Recovered/Resolved]
  - Application site pruritus [Recovered/Resolved]
  - Application site swelling [Recovered/Resolved]
  - Product quality issue [Unknown]
  - Swollen tongue [Recovered/Resolved]
  - Application site erythema [Recovered/Resolved]
  - Application site reaction [Recovered/Resolved]
  - Application site warmth [Recovered/Resolved]

NARRATIVE: CASE EVENT DATE: 20150822
